FAERS Safety Report 16074863 (Version 1)
Quarter: 2019Q1

REPORT INFORMATION
  Report Type: Spontaneous
  Country: FR (occurrence: FR)
  Receive Date: 20190314
  Receipt Date: 20190314
  Transmission Date: 20190418
  Serious: Yes (Other)
  Sender: FDA-Public Use
  Company Number: FR-MYLANLABS-2019M1023137

PATIENT
  Age: 22 Year
  Sex: Female
  Weight: 56 kg

DRUGS (17)
  1. CELLCEPT [Suspect]
     Active Substance: MYCOPHENOLATE MOFETIL\MYCOPHENOLATE MOFETIL HYDROCHLORIDE
     Indication: LUPUS NEPHRITIS
     Dosage: 2 CP MATIN ET SOIR (2G PAR JOUR)
     Route: 048
     Dates: start: 20171030, end: 20180223
  2. CORTANCYL [Concomitant]
     Active Substance: PREDNISONE
     Indication: LUPUS NEPHRITIS
     Dosage: 50 MILLIGRAM
     Route: 048
     Dates: start: 20171030
  3. LASILIX                            /00032601/ [Concomitant]
     Active Substance: FUROSEMIDE
     Indication: NEPHROTIC SYNDROME
     Dosage: 40 MILLIGRAM, QD
     Route: 048
     Dates: start: 20180622, end: 20180710
  4. CORTANCYL [Concomitant]
     Active Substance: PREDNISONE
     Dosage: 25 UNK
     Route: 048
     Dates: start: 20180223
  5. RAMIPRIL MYLAN 2,5 MG, COMPRIM? S?CABLE [Suspect]
     Active Substance: RAMIPRIL
     Indication: NEPHROTIC SYNDROME
     Dosage: 2.5 MILLIGRAM, QD
     Route: 048
     Dates: start: 20180703
  6. KARDEGIC [Concomitant]
     Active Substance: ASPIRIN DL-LYSINE
     Indication: ISCHAEMIC STROKE
     Route: 048
     Dates: start: 20180706
  7. BACTRIM [Concomitant]
     Active Substance: SULFAMETHOXAZOLE\TRIMETHOPRIM
     Indication: ANTIBIOTIC PROPHYLAXIS
     Dosage: 800 +160MG 1 CP LES LUNDI, MERCREDI ET VENDREDI
     Route: 048
     Dates: start: 201805
  8. ZELITREX [Concomitant]
     Active Substance: VALACYCLOVIR HYDROCHLORIDE
     Indication: HERPES ZOSTER
     Dosage: 1000 MILLIGRAM, QD
     Route: 048
     Dates: start: 20180526
  9. CORTANCYL [Concomitant]
     Active Substance: PREDNISONE
     Dosage: 20 UNK
     Route: 048
     Dates: start: 20180526
  10. PANTOPRAZOLE [Concomitant]
     Active Substance: PANTOPRAZOLE
     Indication: GASTRITIS PROPHYLAXIS
     Dosage: 20 MILLIGRAM, QD
     Route: 048
     Dates: start: 20171030
  11. ELIQUIS [Concomitant]
     Active Substance: APIXABAN
     Indication: NEPHROTIC SYNDROME
     Dosage: MATIN ET SOIR
     Route: 048
     Dates: start: 201805
  12. CORTANCYL [Concomitant]
     Active Substance: PREDNISONE
     Dosage: 25 UNK
     Route: 048
     Dates: start: 20180622
  13. CORTANCYL [Concomitant]
     Active Substance: PREDNISONE
     Dosage: 20 UNK
     Route: 048
     Dates: start: 20180720
  14. PLAQUENIL [Concomitant]
     Active Substance: HYDROXYCHLOROQUINE SULFATE
     Indication: LUPUS NEPHRITIS
     Dosage: 200 MG, 1 CP MATIN ET SOIR
     Route: 048
     Dates: start: 20171030
  15. TRUXIMA [Suspect]
     Active Substance: RITUXIMAB-ABBS
     Indication: LUPUS NEPHRITIS
     Dosage: 1 G ? CHAQUE CURE, UNE SEULE CURE RE?UE AVANT EFFET
     Route: 042
     Dates: start: 20180709, end: 20180709
  16. LAROXYL [Concomitant]
     Active Substance: AMITRIPTYLINE HYDROCHLORIDE
     Indication: HERPES ZOSTER
     Dosage: 4 GTT DROPS, QD
     Route: 048
     Dates: start: 20180526
  17. SOLU-MEDROL [Concomitant]
     Active Substance: METHYLPREDNISOLONE SODIUM SUCCINATE
     Indication: LUPUS NEPHRITIS
     Dosage: 240 MG PENDANT 3 JOURS FIN OCTOBRE 2017
     Route: 042
     Dates: start: 20171027, end: 20171030

REACTIONS (1)
  - Electrocardiogram T wave inversion [Not Recovered/Not Resolved]

NARRATIVE: CASE EVENT DATE: 20180724
